FAERS Safety Report 11698267 (Version 1)
Quarter: 2015Q4

REPORT INFORMATION
  Report Type: Spontaneous
  Country: US (occurrence: US)
  Receive Date: 20151104
  Receipt Date: 20151104
  Transmission Date: 20160304
  Serious: No
  Sender: FDA-Public Use
  Company Number: US-ELI_LILLY_AND_COMPANY-US201012005221

PATIENT
  Age: 67 Year
  Sex: Female

DRUGS (1)
  1. FORTEO [Suspect]
     Active Substance: TERIPARATIDE
     Indication: OSTEOPOROSIS
     Dosage: 20 UG, DAILY (1/D)
     Dates: start: 20101216

REACTIONS (7)
  - Abdominal pain lower [Not Recovered/Not Resolved]
  - Feeling abnormal [Unknown]
  - Flatulence [Unknown]
  - Decreased appetite [Unknown]
  - Drug dose omission [Recovered/Resolved]
  - Nausea [Unknown]
  - Motion sickness [Unknown]

NARRATIVE: CASE EVENT DATE: 20101216
